FAERS Safety Report 5909476-1 (Version None)
Quarter: 2008Q4

REPORT INFORMATION
  Report Type: 
  Country: None (occurrence: None)
  Receive Date: 20081001
  Receipt Date: 20080924
  Transmission Date: 20090506
  Serious: Yes (Hospitalization, Other)
  Sender: FDA-Public Use
  Company Number: 2008JP000788

PATIENT
  Age: 9 Year
  Sex: Female

DRUGS (8)
  1. TACROLIMUS [Suspect]
     Indication: LIVER TRANSPLANT
  2. METHYLPREDNISOLONE [Suspect]
     Indication: LIVER TRANSPLANT
     Dosage: 2 MG/KG,/D, IV NOS; 1.5 MG/KG, /D, IV; 1 MG/KG,/D, IV NOS
     Route: 042
  3. AZATHIOPRINE [Suspect]
     Indication: LIVER TRANSPLANT
     Dosage: 1.5 MG, /D, IV NOS
     Route: 042
  4. GANCICLOVIR [Suspect]
     Indication: PROPHYLAXIS
     Dosage: 5.MG/KG, /D, IV NOS
     Route: 042
  5. PREDNISONE [Suspect]
     Dosage: 0.5 MG/KG, /D, IV NOS
     Route: 042
  6. CYCLOSPORINE [Suspect]
  7. COTRIM [Concomitant]
  8. VALACYCLOVIR [Concomitant]

REACTIONS (13)
  - BILE DUCT OBSTRUCTION [None]
  - CYTOMEGALOVIRUS OESOPHAGITIS [None]
  - HAEMOGLOBINURIA [None]
  - HAEMOLYSIS [None]
  - HAEMOLYTIC ANAEMIA [None]
  - INTRAVASCULAR HAEMOLYSIS [None]
  - LYMPHOPENIA [None]
  - PYREXIA [None]
  - RASH MACULO-PAPULAR [None]
  - RENAL FAILURE [None]
  - SMALL INTESTINAL OBSTRUCTION [None]
  - TRANSFUSION MICROCHIMERISM [None]
  - UPPER RESPIRATORY TRACT INFECTION [None]
